FAERS Safety Report 7609603-4 (Version None)
Quarter: 2011Q3

REPORT INFORMATION
  Report Type: 
  Country: None (occurrence: None)
  Receive Date: 20110714
  Receipt Date: 20100608
  Transmission Date: 20111222
  Serious: Yes (Other)
  Sender: FDA-Public Use
  Company Number: US-BAYER-2011-038051

PATIENT
  Sex: Male
  Weight: 126 kg

DRUGS (1)
  1. GADOLINIUM IN UNSPECIFIED DRUG [Suspect]
     Indication: NUCLEAR MAGNETIC RESONANCE IMAGING
     Dosage: UNK
     Dates: start: 20040205, end: 20040205

REACTIONS (13)
  - MOBILITY DECREASED [None]
  - RENAL IMPAIRMENT [None]
  - ANHEDONIA [None]
  - RENAL INJURY [None]
  - JOINT CONTRACTURE [None]
  - EMOTIONAL DISTRESS [None]
  - MENTAL DISORDER [None]
  - DISCOMFORT [None]
  - ACTIVITIES OF DAILY LIVING IMPAIRED [None]
  - RASH [None]
  - PAIN [None]
  - NEPHROGENIC SYSTEMIC FIBROSIS [None]
  - SWELLING [None]
